FAERS Safety Report 8484017-6 (Version None)
Quarter: 2012Q2

REPORT INFORMATION
  Report Type: 
  Country: None (occurrence: None)
  Receive Date: 20120402
  Receipt Date: 20101021
  Transmission Date: 20120825
  Serious: Yes (Other)
  Sender: FDA-Public Use
  Company Number: A-NJ2010-40910

PATIENT
  Age: 41 Year
  Sex: Female
  Weight: 54.4 kg

DRUGS (2)
  1. VENTAVIS [Suspect]
     Indication: PULMONARY ARTERIAL HYPERTENSION
     Dosage: 5 UG, 6X DAILY, RESPIRATORY
     Route: 055
     Dates: start: 20100827, end: 20100930
  2. AMBRISENTAN [Concomitant]

REACTIONS (1)
  - PALPITATIONS [None]
